FAERS Safety Report 6839007-3 (Version None)
Quarter: 2010Q3

REPORT INFORMATION
  Report Type: 
  Country: None (occurrence: None)
  Receive Date: 20100713
  Receipt Date: 20090920
  Transmission Date: 20110219
  Serious: No
  Sender: FDA-Public Use
  Company Number: US-PFIZER INC-2007048696

PATIENT
  Sex: Male
  Weight: 98.2 kg

DRUGS (5)
  1. CHANTIX [Suspect]
     Indication: SMOKING CESSATION THERAPY
     Dates: start: 20070531
  2. LIPITOR [Concomitant]
     Dosage: 10 MG, 1X/DAY
  3. EFFEXOR XR [Concomitant]
     Dosage: UNK
  4. DEPAKOTE [Concomitant]
  5. LAMICTAL [Concomitant]

REACTIONS (5)
  - BLOOD PRESSURE INCREASED [None]
  - HEADACHE [None]
  - INCREASED APPETITE [None]
  - SLEEP APNOEA SYNDROME [None]
  - WEIGHT INCREASED [None]
